FAERS Safety Report 10054984 (Version 2)
Quarter: 2014Q4

REPORT INFORMATION
  Report Type: Spontaneous
  Country: CN (occurrence: CN)
  Receive Date: 20140402
  Receipt Date: 20141022
  Transmission Date: 20150528
  Serious: Yes (Other)
  Sender: FDA-Public Use
  Company Number: PHHY2014CN039551

PATIENT
  Age: 52 Year
  Sex: Female
  Weight: 53 kg

DRUGS (4)
  1. TACROLIMUS. [Suspect]
     Active Substance: TACROLIMUS
     Indication: PROPHYLAXIS AGAINST GRAFT VERSUS HOST DISEASE
     Dosage: 0.4 MG, QD
     Route: 042
     Dates: start: 20140101
  2. SANDIMMUN NEORAL [Suspect]
     Active Substance: CYCLOSPORINE
     Indication: PROPHYLAXIS AGAINST GRAFT VERSUS HOST DISEASE
     Dosage: 1.25 MG/KG, Q12H
     Route: 048
     Dates: start: 20131231
  3. SANDIMMUN NEORAL [Suspect]
     Active Substance: CYCLOSPORINE
     Dosage: UNK UKN, UNK
     Route: 048
     Dates: start: 20140124, end: 20140404
  4. SANDIMMUN NEORAL [Suspect]
     Active Substance: CYCLOSPORINE
     Indication: TRANSPLANT REJECTION
     Dosage: LOW DOSE WAS ADMINISTRATED
     Route: 048
     Dates: start: 20140101

REACTIONS (11)
  - Dyspnoea [Recovering/Resolving]
  - Chest discomfort [Recovering/Resolving]
  - Drug ineffective [Recovering/Resolving]
  - Eyelid oedema [Recovering/Resolving]
  - Oxygen saturation decreased [Recovering/Resolving]
  - Urticaria [Recovering/Resolving]
  - Dysphonia [Recovering/Resolving]
  - Immunosuppressant drug level decreased [Recovering/Resolving]
  - Pruritus [Recovering/Resolving]
  - Hypersensitivity [Recovering/Resolving]
  - Flushing [Recovering/Resolving]

NARRATIVE: CASE EVENT DATE: 20131231
